FAERS Safety Report 6388224-8 (Version None)
Quarter: 2009Q3

REPORT INFORMATION
  Report Type: 
  Country: None (occurrence: None)
  Receive Date: 20090930
  Receipt Date: 20090915
  Transmission Date: 20100115
  Serious: Yes (Hospitalization)
  Sender: FDA-Public Use
  Company Number: 001780

PATIENT
  Sex: Male
  Weight: 68 kg

DRUGS (7)
  1. NEUPRO [Suspect]
     Dosage: 4 MG QD TRANSDERMAL; 6 MG QD TRANSDERMAL
     Route: 062
     Dates: start: 20090625, end: 20090727
  2. NEUPRO [Suspect]
     Dosage: 4 MG QD TRANSDERMAL; 6 MG QD TRANSDERMAL
     Route: 062
     Dates: start: 20090728
  3. LEVODOPA [Concomitant]
  4. REQUIP [Concomitant]
  5. MIRTAZAPINE [Concomitant]
  6. DOMERIDON [Concomitant]
  7. SODIUM PERCHLORATE [Concomitant]

REACTIONS (2)
  - PROGRESSIVE SUPRANUCLEAR PALSY [None]
  - UNEVALUABLE EVENT [None]
